FAERS Safety Report 17109222 (Version 1)
Quarter: 2019Q4

REPORT INFORMATION
  Report Type: Spontaneous
  Country: US (occurrence: US)
  Receive Date: 20191204
  Receipt Date: 20191204
  Transmission Date: 20200122
  Serious: No
  Sender: FDA-Public Use
  Company Number: US-ELI_LILLY_AND_COMPANY-US201912001261

PATIENT

DRUGS (1)
  1. TRULICITY [Suspect]
     Active Substance: DULAGLUTIDE
     Indication: WEIGHT DECREASED
     Dosage: 0.75 MG, UNKNOWN
     Route: 065

REACTIONS (6)
  - Dyspepsia [Unknown]
  - Rash [Unknown]
  - Abdominal pain [Unknown]
  - Urticaria [Unknown]
  - Vomiting [Unknown]
  - Off label use [Unknown]
